FAERS Safety Report 21904159 (Version 1)
Quarter: 2023Q1

REPORT INFORMATION
  Report Type: Spontaneous
  Country: US (occurrence: US)
  Receive Date: 20230124
  Receipt Date: 20230124
  Transmission Date: 20230417
  Serious: No
  Sender: FDA-Public Use
  Company Number: US-TEVA-2023-US-2845062

PATIENT

DRUGS (1)
  1. METHYLPHENIDATE HYDROCHLORIDE [Suspect]
     Active Substance: METHYLPHENIDATE HYDROCHLORIDE
     Indication: Product used for unknown indication
     Route: 065

REACTIONS (21)
  - Attention deficit hyperactivity disorder [Unknown]
  - Abdominal pain upper [Unknown]
  - Diarrhoea [Unknown]
  - Decreased appetite [Unknown]
  - Headache [Unknown]
  - Disturbance in attention [Unknown]
  - Feeling abnormal [Unknown]
  - Heart rate increased [Unknown]
  - Dry mouth [Unknown]
  - Hot flush [Unknown]
  - Anxiety [Unknown]
  - Hypervigilance [Unknown]
  - Irritability [Unknown]
  - Impulsive behaviour [Unknown]
  - Aphasia [Unknown]
  - Memory impairment [Unknown]
  - Visual impairment [Unknown]
  - Hypersensitivity [Unknown]
  - Emotional disorder [Unknown]
  - Somnolence [Unknown]
  - Therapeutic product effect incomplete [Unknown]
